FAERS Safety Report 11458932 (Version 1)
Quarter: 2015Q3

REPORT INFORMATION
  Report Type: Spontaneous
  Country: US (occurrence: US)
  Receive Date: 20150904
  Receipt Date: 20150904
  Transmission Date: 20151125
  Serious: Yes (Other)
  Sender: FDA-Public Use
  Company Number: US-TAKEDA-2014TUS005449

PATIENT

DRUGS (36)
  1. GLUCOPHAGE XR [Concomitant]
     Active Substance: METFORMIN HYDROCHLORIDE
     Dosage: 500 MG, UNK
     Dates: start: 20070402, end: 20070503
  2. HUMALOG MIX [Concomitant]
     Active Substance: INSULIN LISPRO
     Dosage: UNK
     Dates: start: 20040503
  3. LANTUS [Concomitant]
     Active Substance: INSULIN GLARGINE
     Dosage: 100 U AS DIRECTED
     Route: 058
     Dates: start: 20121212, end: 20130102
  4. NOVOLOG [Concomitant]
     Active Substance: INSULIN ASPART
     Dosage: 100 UNITS DAILY
     Route: 058
     Dates: start: 20121212
  5. NOVOLOG [Concomitant]
     Active Substance: INSULIN ASPART
     Dosage: 12 U AT BREAKFAST, 12 UNITS LUNCH WIHT FLEX CORRECTION
     Dates: start: 200107, end: 201302
  6. ACTOS [Suspect]
     Active Substance: PIOGLITAZONE HYDROCHLORIDE
     Dosage: 45 MG, UNK
     Route: 048
     Dates: start: 20050122, end: 20071018
  7. METFORMIN [Concomitant]
     Active Substance: METFORMIN HYDROCHLORIDE
     Dosage: 1000 MG, BID WITH MEALS
     Dates: start: 20120807, end: 20140522
  8. NOVOLOG [Concomitant]
     Active Substance: INSULIN ASPART
     Dosage: SLIDING SCALE UP TO 100 UNITS
     Dates: start: 20130114
  9. ACTOS [Suspect]
     Active Substance: PIOGLITAZONE HYDROCHLORIDE
     Indication: TYPE 2 DIABETES MELLITUS
     Dosage: 45 MG, UNK
     Route: 048
     Dates: start: 1997, end: 2004
  10. METFORMIN [Concomitant]
     Active Substance: METFORMIN HYDROCHLORIDE
     Dosage: 500 MG, UNK
     Dates: start: 20041013, end: 20081016
  11. LANTUS [Concomitant]
     Active Substance: INSULIN GLARGINE
     Dosage: UP TO 100 UNITS DAILY
     Dates: start: 20130304, end: 20130603
  12. NOVOLOG [Concomitant]
     Active Substance: INSULIN ASPART
     Dosage: 16 U BEFORE MEALS
     Dates: start: 20140522
  13. ACTOS [Suspect]
     Active Substance: PIOGLITAZONE HYDROCHLORIDE
     Dosage: 45 MG, UNK
     Route: 048
     Dates: start: 20071112, end: 20081115
  14. GLUCOPHAGE XR [Concomitant]
     Active Substance: METFORMIN HYDROCHLORIDE
     Dosage: 500 MG, UNK
     Dates: start: 20020310, end: 20020702
  15. LANTUS [Concomitant]
     Active Substance: INSULIN GLARGINE
     Dosage: UP TO 100 UNITS DAILY
     Dates: start: 20130109
  16. NOVOLOG [Concomitant]
     Active Substance: INSULIN ASPART
     Dosage: 15 U BEFORE MEALS
     Dates: start: 20120807
  17. NOVOLOG [Concomitant]
     Active Substance: INSULIN ASPART
     Dosage: 12 U BEFORE MEALS WITH CORRECTION SCALE
     Dates: start: 20130801, end: 20130917
  18. LANTUS [Concomitant]
     Active Substance: INSULIN GLARGINE
     Dosage: 86 UNITS AT HS
     Dates: start: 20130702
  19. LANTUS [Concomitant]
     Active Substance: INSULIN GLARGINE
     Dosage: 50 U AT 9 PM BEDTIME, IF OVER AT HOUR OF SLEEP , 3 UNITS WITH SNACK
     Dates: start: 20131022
  20. NOVOLOG [Concomitant]
     Active Substance: INSULIN ASPART
     Dosage: 11 UNITS BEFORE MEALS PLUS CORRECTION SCALE MEALS
     Dates: start: 20130102
  21. LANTUS [Concomitant]
     Active Substance: INSULIN GLARGINE
     Dosage: UNK
     Dates: start: 20051229, end: 20080506
  22. LANTUS [Concomitant]
     Active Substance: INSULIN GLARGINE
     Dosage: 50 U AT 9 PM/BEDTIME
     Dates: start: 20131010
  23. NOVOLOG [Concomitant]
     Active Substance: INSULIN ASPART
     Dosage: SLIDING SCALE
     Dates: start: 20121227
  24. NOVOLOG [Concomitant]
     Active Substance: INSULIN ASPART
     Dosage: 12 U BEFORE MEALS, 2 U WITH SNACKS
     Dates: start: 20130206, end: 20130603
  25. HUMALOG MIX [Concomitant]
     Active Substance: INSULIN LISPRO
     Dosage: 75/15
     Dates: start: 20080227, end: 20081016
  26. LANTUS [Concomitant]
     Active Substance: INSULIN GLARGINE
     Dosage: UP TO 100 UNITS DAILY
     Dates: start: 20120918
  27. LANTUS [Concomitant]
     Active Substance: INSULIN GLARGINE
     Dosage: SLIDNING SCALE
     Dates: start: 20121227
  28. LANTUS [Concomitant]
     Active Substance: INSULIN GLARGINE
     Dosage: 100 UNITS SPLIT TWO INJECTIONS
     Dates: start: 20130116, end: 20130206
  29. LANTUS [Concomitant]
     Active Substance: INSULIN GLARGINE
     Dosage: 50 U AT 9PM/ BEDTIME
     Dates: start: 20130702
  30. LANTUS [Concomitant]
     Active Substance: INSULIN GLARGINE
     Dosage: UP TO 100 U DAILY
     Dates: start: 20130801
  31. NOVOLIN [Concomitant]
     Active Substance: INSULIN HUMAN
     Indication: DIABETES MELLITUS
     Dosage: UNK
     Dates: start: 20050122, end: 20051206
  32. NOVOLOG [Concomitant]
     Active Substance: INSULIN ASPART
     Dosage: 15 UNITS MEALS AND 3-4 UNITS WITH SNACKS
     Dates: start: 20140204
  33. HUMALOG MIX [Concomitant]
     Active Substance: INSULIN LISPRO
     Dosage: UNK
     Dates: start: 20021211, end: 20030628
  34. LANTUS [Concomitant]
     Active Substance: INSULIN GLARGINE
     Dosage: 90 UNITS HS
     Dates: start: 20130917
  35. LANTUS [Concomitant]
     Active Substance: INSULIN GLARGINE
     Dosage: 50 U AT 9PM/BEDTIME
     Dates: start: 20140522
  36. NOVOLOG [Concomitant]
     Active Substance: INSULIN ASPART
     Dosage: 15 U BEFORE MEALS WITH CORRECTION 2 UNITS FOR EVERY 50 POINTS ABOVE 150 WITH MEALS
     Dates: start: 20131010

REACTIONS (1)
  - Bladder cancer [Unknown]

NARRATIVE: CASE EVENT DATE: 20140129
